FAERS Safety Report 24386171 (Version 2)
Quarter: 2024Q4

REPORT INFORMATION
  Report Type: Spontaneous
  Country: US (occurrence: US)
  Receive Date: 20241001
  Receipt Date: 20241010
  Transmission Date: 20250115
  Serious: Yes (Other)
  Sender: PFIZER
  Company Number: US-PFIZER INC-PV202400126338

PATIENT
  Age: 69 Year
  Sex: Male
  Weight: 72.109 kg

DRUGS (8)
  1. VYNDAMAX [Suspect]
     Active Substance: TAFAMIDIS
     Indication: Amyloidosis
     Dosage: 1 CAPSULE BY MOUTH DAILY
     Route: 048
     Dates: start: 20240521
  2. VYNDAMAX [Suspect]
     Active Substance: TAFAMIDIS
     Indication: Cardiac failure congestive
     Dosage: 1 CAPSULE BY MOUTH DAILY
     Route: 048
     Dates: start: 20240822
  3. VYNDAMAX [Suspect]
     Active Substance: TAFAMIDIS
     Indication: Systolic dysfunction
     Dosage: 61 MG, 1X/DAY
     Route: 048
  4. VYNDAMAX [Suspect]
     Active Substance: TAFAMIDIS
     Indication: Diastolic dysfunction
  5. VYNDAMAX [Suspect]
     Active Substance: TAFAMIDIS
     Indication: Cardiac amyloidosis
  6. VYNDAMAX [Suspect]
     Active Substance: TAFAMIDIS
     Indication: Acquired ATTR amyloidosis
  7. SPIRONOLACTONE [Suspect]
     Active Substance: SPIRONOLACTONE
     Dosage: 1QD (ONCE A DAY) 90 DAYS, 3
     Route: 048
  8. ROSUVASTATIN CALCIUM [Concomitant]
     Active Substance: ROSUVASTATIN CALCIUM
     Dosage: 1QD (ONCE A DAY) 90 DAYS, 3
     Route: 048

REACTIONS (5)
  - Exeresis [Unknown]
  - Cardiac disorder [Unknown]
  - Overweight [Recovering/Resolving]
  - Platelet count decreased [Unknown]
  - Blood urea nitrogen/creatinine ratio increased [Unknown]

NARRATIVE: CASE EVENT DATE: 20240101
